FAERS Safety Report 4503043-2 (Version None)
Quarter: 2004Q4

REPORT INFORMATION
  Report Type: 
  Country: None (occurrence: None)
  Receive Date: 20041112
  Receipt Date: 20041101
  Transmission Date: 20050328
  Serious: Yes (Hospitalization)
  Sender: FDA-Public Use
  Company Number: 209736

PATIENT
  Age: 65 Year
  Sex: Female
  Weight: 79 kg

DRUGS (8)
  1. HERCEPTIN [Suspect]
     Indication: BREAST CANCER
     Dosage: SEE IMAGE
     Route: 042
     Dates: start: 20031030, end: 20031030
  2. HERCEPTIN [Suspect]
     Indication: BREAST CANCER
     Dosage: SEE IMAGE
     Route: 042
     Dates: start: 20040628, end: 20040628
  3. CYCLOPHOSPHAMIDE [Concomitant]
  4. COXORUBICIN (DOXORUBICIN HYDROCHLORIDE, DOXORUBICIN) [Concomitant]
  5. DOCETAXEL (DOCETAXEL) [Concomitant]
  6. ZOFRAN [Concomitant]
  7. DEXAMETHASONE [Concomitant]
  8. ONDANSETRON HCL [Concomitant]

REACTIONS (9)
  - CAROTID ARTERY OCCLUSION [None]
  - CAROTID ARTERY STENOSIS [None]
  - CEREBROVASCULAR ACCIDENT [None]
  - DIZZINESS [None]
  - HEADACHE [None]
  - HYPERTENSION [None]
  - STUPOR [None]
  - VENTRICULAR EXTRASYSTOLES [None]
  - VERTIGO [None]
